FAERS Safety Report 15321470 (Version 3)
Quarter: 2018Q4

REPORT INFORMATION
  Report Type: Spontaneous
  Country: JP (occurrence: JP)
  Receive Date: 20180827
  Receipt Date: 20181027
  Transmission Date: 20190204
  Serious: Yes (Death, Other)
  Sender: FDA-Public Use
  Company Number: JP-009507513-1808JPN002114J

PATIENT
  Age: 57 Year
  Sex: Female
  Weight: 51 kg

DRUGS (7)
  1. PROPOFOL. [Suspect]
     Active Substance: PROPOFOL
     Dosage: UNK
     Route: 065
  2. ADRENALINE [Suspect]
     Active Substance: EPINEPHRINE
     Dosage: 0.1 MG, ONCE
     Route: 065
  3. NORADRENALINE [Suspect]
     Active Substance: NOREPINEPHRINE
     Dosage: 0.1 MICROGRAM PER KILOGRAM/ PER MINUTE
     Route: 065
  4. ESLAX INTRAVENOUS 25MG/2.5ML [Suspect]
     Active Substance: ROCURONIUM BROMIDE
     Dosage: UNK
     Route: 042
  5. ADRENALINE [Suspect]
     Active Substance: EPINEPHRINE
     Dosage: 0.1 MG, ONCE
     Route: 065
  6. REMIFENTANIL HYDROCHLORIDE. [Suspect]
     Active Substance: REMIFENTANIL HYDROCHLORIDE
     Dosage: UNK
     Route: 065
  7. PHENYLEPHRINE HYDROCHLORIDE. [Suspect]
     Active Substance: PHENYLEPHRINE HYDROCHLORIDE
     Dosage: 0.1 MG, UNK
     Route: 065

REACTIONS (3)
  - Death [Fatal]
  - Right ventricular failure [Unknown]
  - Hypotension [Unknown]
